FAERS Safety Report 5865263-4 (Version None)
Quarter: 2008Q3

REPORT INFORMATION
  Report Type: 
  Country: None (occurrence: None)
  Receive Date: 20080829
  Receipt Date: 20070709
  Transmission Date: 20090109
  Serious: No
  Sender: FDA-Public Use
  Company Number: A0662495A

PATIENT
  Sex: Male

DRUGS (3)
  1. BECONASE [Suspect]
     Dosage: 2SPR VARIABLE DOSE
     Route: 045
  2. FLONASE [Suspect]
     Route: 045
  3. ADVAIR DISKUS 100/50 [Suspect]
     Route: 055
     Dates: start: 20060101

REACTIONS (4)
  - DRUG EFFECT DECREASED [None]
  - LARYNGITIS [None]
  - NERVOUSNESS [None]
  - OROPHARYNGEAL PAIN [None]
